FAERS Safety Report 8457082-X (Version None)
Quarter: 2012Q2

REPORT INFORMATION
  Report Type: 
  Country: None (occurrence: None)
  Receive Date: 20120621
  Receipt Date: 20120608
  Transmission Date: 20120825
  Serious: Yes (Other)
  Sender: FDA-Public Use
  Company Number: IT-MYLANLABS-2012S1011838

PATIENT
  Age: 74 Year
  Sex: Female

DRUGS (1)
  1. PACLITAXEL [Suspect]
     Indication: BREAST CANCER FEMALE
     Route: 042
     Dates: start: 20120604, end: 20120604

REACTIONS (6)
  - CHEST PAIN [None]
  - LOSS OF CONSCIOUSNESS [None]
  - ARRHYTHMIA [None]
  - BACK PAIN [None]
  - CYANOSIS [None]
  - HYPOTENSION [None]
